FAERS Safety Report 10421150 (Version 1)
Quarter: 2014Q3

REPORT INFORMATION
  Report Type: Spontaneous
  Country: IT (occurrence: IT)
  Receive Date: 20140830
  Receipt Date: 20140830
  Transmission Date: 20150326
  Serious: Yes (Hospitalization)
  Sender: FDA-Public Use
  Company Number: IT-AUROBINDO-AUR-APL-2014-09140

PATIENT
  Age: 42 Year
  Sex: Male

DRUGS (7)
  1. DIAZEPAM. [Suspect]
     Active Substance: DIAZEPAM
     Indication: DRUG WITHDRAWAL SYNDROME
     Dosage: 10 MG, IN A 0.9% SODIUM CHLORIDE SOLUTION (1000 CC IV)
     Route: 042
  2. DIAZEPAM. [Suspect]
     Active Substance: DIAZEPAM
     Dosage: 8 MG, ONCE A DAY
     Route: 042
  3. DELORAZEPAM [Suspect]
     Active Substance: DELORAZEPAM
     Indication: DRUG WITHDRAWAL SYNDROME
     Dosage: UNK
     Route: 048
  4. OLANZAPINE. [Suspect]
     Active Substance: OLANZAPINE
     Indication: DRUG WITHDRAWAL SYNDROME
     Dosage: UNK
     Route: 048
  5. HALOPERIDOL. [Suspect]
     Active Substance: HALOPERIDOL
     Indication: DRUG WITHDRAWAL SYNDROME
     Dosage: 10 MG, UNK
     Route: 030
  6. DIAZEPAM. [Suspect]
     Active Substance: DIAZEPAM
     Dosage: 20 MG, EVERY 6 HOURS, IN 0.9% SODIUM CHLORIDE SOLUTION (500 CC IV)
     Route: 042
  7. OLANZAPINE. [Suspect]
     Active Substance: OLANZAPINE
     Dosage: 15 MG, ONCE A DAY
     Route: 048

REACTIONS (1)
  - Drug ineffective [Recovered/Resolved]
